FAERS Safety Report 20309383 (Version 1)
Quarter: 2022Q1

REPORT INFORMATION
  Report Type: Spontaneous
  Country: IT (occurrence: None)
  Receive Date: 20220107
  Receipt Date: 20220107
  Transmission Date: 20220424
  Serious: Yes (Hospitalization, Other)
  Sender: FDA-Public Use
  Company Number: None

PATIENT
  Age: 59 Year
  Sex: Male

DRUGS (7)
  1. PIPERACILLIN SODIUM\TAZOBACTAM SODIUM [Suspect]
     Active Substance: PIPERACILLIN SODIUM\TAZOBACTAM SODIUM
     Indication: Evidence based treatment
     Dosage: UNK ()
  2. LINEZOLID [Suspect]
     Active Substance: LINEZOLID
     Indication: Evidence based treatment
     Dosage: UNK ()
  3. AMIKACIN SULFATE [Suspect]
     Active Substance: AMIKACIN SULFATE
     Indication: Evidence based treatment
     Dosage: UNK
  4. GENTAMICIN [Suspect]
     Active Substance: GENTAMICIN
     Indication: Evidence based treatment
     Dosage: UNK ()
  5. MEROPENEM [Suspect]
     Active Substance: MEROPENEM
     Indication: Evidence based treatment
     Dosage: UNK ()
  6. METHYLPREDNISOLONE [Concomitant]
     Active Substance: METHYLPREDNISOLONE
     Indication: COVID-19
     Route: 065
  7. CEFEPIME [Suspect]
     Active Substance: CEFEPIME HYDROCHLORIDE
     Indication: Evidence based treatment
     Dosage: UNK ()

REACTIONS (9)
  - Vasculitis [Unknown]
  - Rash maculo-papular [Unknown]
  - Cutaneous vasculitis [Unknown]
  - Purpura [Unknown]
  - Confusional state [Unknown]
  - Petit mal epilepsy [Unknown]
  - Condition aggravated [Unknown]
  - Off label use [Unknown]
  - Eosinophilia [Recovered/Resolved]
